FAERS Safety Report 9969734 (Version 2)
Quarter: 2014Q1

REPORT INFORMATION
  Report Type: Spontaneous
  Country: US (occurrence: None)
  Receive Date: 20140304
  Receipt Date: 20140314
  Transmission Date: 20141002
  Serious: Yes (Other)
  Sender: FDA-Public Use
  Company Number: AUR-APL-2014-02072

PATIENT
  Age: 64 Year
  Sex: Female
  Weight: 147.42 kg

DRUGS (12)
  1. AMLODIPINE+BENAZEPRIL [Suspect]
     Indication: BLOOD PRESSURE
     Dosage: ONE QAM
     Dates: start: 201206
  2. THORAZINE [Suspect]
     Indication: PRODUCT USED FOR UNKNOWN INDICATION
     Dates: end: 201206
  3. TEGRETOL (CARBAMAZEPINE) UNKNOWN [Suspect]
     Indication: PRODUCT USED FOR UNKNOWN INDICATION
     Dates: end: 201206
  4. GLIPIZIDE ER (GLIPIZIDE) [Concomitant]
  5. METFORMIN (METFORMIN) [Concomitant]
  6. JANUVIA (SITAGLIPTIN PHOSPHATE) [Concomitant]
  7. SIMVASTATIN (SIMVASTATIN) [Concomitant]
  8. TRAMADOL (TRAMADOL) [Concomitant]
  9. LEVEMIR (INUSULIN DETEMIR) [Concomitant]
  10. DEPAKOTE (VALPROATE SEMISODIUM) [Concomitant]
  11. TYLEOL (PARACETAMOL) [Concomitant]
  12. CENTRUM (CENTRUM) [Concomitant]

REACTIONS (5)
  - Drug interaction [None]
  - Blood disorder [None]
  - Weight increased [None]
  - White blood cell disorder [None]
  - Red blood cell abnormality [None]
